FAERS Safety Report 19452757 (Version 1)
Quarter: 2021Q2

REPORT INFORMATION
  Report Type: Report from Study
  Country: GB (occurrence: GB)
  Receive Date: 20210623
  Receipt Date: 20210623
  Transmission Date: 20210717
  Serious: Yes (Other)
  Sender: FDA-Public Use
  Company Number: GB-SAMSUNG BIOEPIS-SB-2021-12428

PATIENT
  Age: 52 Year
  Sex: Female

DRUGS (1)
  1. BENEPALI [Suspect]
     Active Substance: ETANERCEPT
     Indication: PSORIATIC ARTHROPATHY
     Route: 058
     Dates: start: 20210507

REACTIONS (15)
  - Contusion [Unknown]
  - Fall [Unknown]
  - Nausea [Unknown]
  - Malaise [Unknown]
  - Psoriatic arthropathy [Unknown]
  - Dizziness [Unknown]
  - Oropharyngeal pain [Unknown]
  - Decreased appetite [Unknown]
  - Depressed mood [Unknown]
  - Headache [Unknown]
  - Mood swings [Unknown]
  - Fatigue [Unknown]
  - Loss of personal independence in daily activities [Unknown]
  - Illness [Unknown]
  - Drug ineffective [Unknown]

NARRATIVE: CASE EVENT DATE: 20210507
